FAERS Safety Report 17125939 (Version 2)
Quarter: 2020Q1

REPORT INFORMATION
  Report Type: Spontaneous
  Country: ES (occurrence: ES)
  Receive Date: 20191208
  Receipt Date: 20200212
  Transmission Date: 20200409
  Serious: Yes (Hospitalization, Other)
  Sender: FDA-Public Use
  Company Number: ES-AUROBINDO-AUR-APL-2019-076137

PATIENT
  Age: 66 Year
  Sex: Female

DRUGS (2)
  1. ERTAPENEM POWDER FOR CONCENTRATE FOR SOLUTION FOR INFUSION [Suspect]
     Active Substance: ERTAPENEM
     Indication: ESCHERICHIA INFECTION
     Dosage: 1 GRAM, ONCE A DAY
     Route: 042
  2. ERTAPENEM POWDER FOR CONCENTRATE FOR SOLUTION FOR INFUSION [Suspect]
     Active Substance: ERTAPENEM
     Indication: URINARY TRACT DISCOMFORT
     Dosage: UNK, DAILY
     Route: 042

REACTIONS (8)
  - Arthralgia [Recovered/Resolved]
  - Skin lesion [Recovered/Resolved]
  - Skin oedema [Recovered/Resolved]
  - Malaise [Recovered/Resolved]
  - Product use in unapproved indication [Unknown]
  - Skin plaque [Recovered/Resolved]
  - Hypersensitivity vasculitis [Recovered/Resolved]
  - Purpura [Recovered/Resolved]
